FAERS Safety Report 5810159-7 (Version None)
Quarter: 2008Q3

REPORT INFORMATION
  Report Type: 
  Country: None (occurrence: None)
  Receive Date: 20080715
  Receipt Date: 20070904
  Transmission Date: 20090109
  Serious: No
  Sender: FDA-Public Use
  Company Number: A0676143A

PATIENT
  Age: 31 Year
  Sex: Female
  Weight: 60 kg

DRUGS (3)
  1. IMITREX [Suspect]
     Indication: MIGRAINE
     Dosage: 100MG AS REQUIRED
     Route: 048
     Dates: start: 20070101, end: 20070101
  2. ASPIRIN [Concomitant]
     Dosage: 81MG UNKNOWN
     Route: 048
     Dates: start: 20070804
  3. ADVICOR [Concomitant]
     Route: 048
     Dates: start: 20070804

REACTIONS (3)
  - CHEST PAIN [None]
  - NAUSEA [None]
  - PALPITATIONS [None]
